FAERS Safety Report 18502024 (Version 1)
Quarter: 2020Q4

REPORT INFORMATION
  Report Type: Not Available
  Country: None (occurrence: None)
  Receive Date: 20201113
  Receipt Date: 20201113
  Transmission Date: 20210114
  Serious: Yes (Other)
  Sender: FDA-Public Use
  Company Number: US-AKORN-155816

PATIENT
  Age: 67 Year
  Sex: Female

DRUGS (1)
  1. HYDRAALAZINE HYDROCHLORIDE INJECTION, USP [Suspect]
     Active Substance: HYDRALAZINE HYDROCHLORIDE

REACTIONS (5)
  - Blood pressure increased [Recovered/Resolved]
  - Sinus congestion [Not Recovered/Not Resolved]
  - Blood pressure decreased [Recovered/Resolved]
  - Nausea [Recovered/Resolved]
  - Dizziness [Recovered/Resolved]
